FAERS Safety Report 4714266-1 (Version None)
Quarter: 2005Q3

REPORT INFORMATION
  Report Type: 
  Country: None (occurrence: None)
  Receive Date: 20050714
  Receipt Date: 20050711
  Transmission Date: 20060218
  Serious: Yes (Death)
  Sender: FDA-Public Use
  Company Number: JP-SOLVAY-00305002226

PATIENT
  Age: 79 Year
  Sex: Female

DRUGS (5)
  1. ALPRAZOLAM [Concomitant]
     Indication: ILL-DEFINED DISORDER
     Dosage: DAILY DOSE: 2.4 MILLIGRAM(S)
     Route: 048
     Dates: start: 20050621, end: 20050624
  2. LUVOX [Suspect]
     Indication: DEPRESSION
     Dosage: DAILY DOSE: 50 MILLIGRAM(S)
     Route: 048
     Dates: start: 20050613, end: 20050624
  3. BROTIZOLAM [Concomitant]
     Indication: ILL-DEFINED DISORDER
     Dosage: DAILY DOSE: .25 MILLIGRAM(S)
     Route: 048
     Dates: start: 20050613, end: 20050624
  4. ARICEPT [Suspect]
     Indication: ILL-DEFINED DISORDER
     Dosage: DAILY DOSE: 3 MILLIGRAM(S)
     Route: 048
     Dates: start: 20050621, end: 20050624
  5. TEGRETOL [Suspect]
     Indication: ILL-DEFINED DISORDER
     Dosage: DAILY DOSE: 400 MILLIGRAM(S)
     Route: 048
     Dates: start: 20050621, end: 20050624

REACTIONS (2)
  - NEUROLEPTIC MALIGNANT SYNDROME [None]
  - RHABDOMYOLYSIS [None]
